FAERS Safety Report 6834962-X (Version None)
Quarter: 2010Q3

REPORT INFORMATION
  Report Type: 
  Country: None (occurrence: None)
  Receive Date: 20100713
  Receipt Date: 20100701
  Transmission Date: 20110219
  Serious: Yes (Other)
  Sender: FDA-Public Use
  Company Number: US-ASTRAZENECA-2007UW18895

PATIENT
  Age: 19253 Day
  Sex: Male
  Weight: 84.4 kg

DRUGS (24)
  1. SEROQUEL [Suspect]
     Indication: SCHIZOPHRENIA
     Dosage: 4  2 DAY, 8 TABS
     Route: 048
     Dates: start: 19970101
  2. SEROQUEL [Suspect]
     Indication: BIPOLAR DISORDER
     Dosage: 4  2 DAY, 8 TABS
     Route: 048
     Dates: start: 19970101
  3. SEROQUEL [Suspect]
     Indication: DEPRESSION
     Dosage: 4  2 DAY, 8 TABS
     Route: 048
     Dates: start: 19970101
  4. SEROQUEL [Suspect]
     Indication: PARANOIA
     Dosage: 4  2 DAY, 8 TABS
     Route: 048
     Dates: start: 19970101
  5. SEROQUEL [Suspect]
     Indication: HALLUCINATION, AUDITORY
     Dosage: 4  2 DAY, 8 TABS
     Route: 048
     Dates: start: 19970101
  6. SEROQUEL [Suspect]
     Route: 048
     Dates: start: 20030209
  7. SEROQUEL [Suspect]
     Route: 048
     Dates: start: 20030209
  8. SEROQUEL [Suspect]
     Route: 048
     Dates: start: 20030209
  9. SEROQUEL [Suspect]
     Route: 048
     Dates: start: 20030209
  10. SEROQUEL [Suspect]
     Route: 048
     Dates: start: 20030209
  11. SEROQUEL [Suspect]
     Route: 048
     Dates: end: 20090105
  12. SEROQUEL [Suspect]
     Route: 048
     Dates: end: 20090105
  13. SEROQUEL [Suspect]
     Route: 048
     Dates: end: 20090105
  14. SEROQUEL [Suspect]
     Route: 048
     Dates: end: 20090105
  15. SEROQUEL [Suspect]
     Route: 048
     Dates: end: 20090105
  16. RANITIDINE [Concomitant]
     Dates: start: 20030118
  17. LEVOXYL [Concomitant]
     Indication: THYROID DISORDER
     Dates: start: 19850101
  18. ATENOLOL [Concomitant]
     Dates: start: 20040113
  19. REGLAN [Concomitant]
     Dates: start: 20040113
  20. DEPAKOTE [Concomitant]
     Indication: BIPOLAR I DISORDER
     Dates: start: 19970101
  21. REMERON [Concomitant]
     Indication: DEPRESSION
     Dates: start: 19970101
  22. LOTENSIN [Concomitant]
     Indication: BLOOD PRESSURE
     Dates: start: 19980101
  23. RESTORIL [Concomitant]
     Indication: SLEEP DISORDER
     Dates: start: 19970101
  24. BUSPAR [Concomitant]
     Indication: ANXIETY
     Dates: start: 19970101

REACTIONS (5)
  - DIABETES MELLITUS [None]
  - DIABETES MELLITUS INADEQUATE CONTROL [None]
  - DIABETIC NEPHROPATHY [None]
  - ERECTILE DYSFUNCTION [None]
  - TYPE 2 DIABETES MELLITUS [None]
